FAERS Safety Report 5324906-4 (Version None)
Quarter: 2007Q2

REPORT INFORMATION
  Report Type: 
  Country: None (occurrence: None)
  Receive Date: 20070515
  Receipt Date: 20070508
  Transmission Date: 20071010
  Serious: Yes (Disabling)
  Sender: FDA-Public Use
  Company Number: PHBS2007CO07852

PATIENT
  Age: 10 Year
  Sex: Female

DRUGS (1)
  1. GLEEVEC [Suspect]
     Indication: CHRONIC MYELOID LEUKAEMIA
     Dosage: 300 MG/D
     Route: 048
     Dates: start: 20050524, end: 20070430

REACTIONS (3)
  - HEPATITIS A [None]
  - JAUNDICE [None]
  - TRANSAMINASES INCREASED [None]
